FAERS Safety Report 24869635 (Version 1)
Quarter: 2025Q1

REPORT INFORMATION
  Report Type: Other
  Country: GB (occurrence: GB)
  Receive Date: 20250121
  Receipt Date: 20250121
  Transmission Date: 20250409
  Serious: No
  Sender: SIGA TECHNOLOGIES, INC.
  Company Number: GB-SIGA Technologies, Inc.-2169482

PATIENT

DRUGS (1)
  1. TPOXX [Suspect]
     Active Substance: TECOVIRIMAT
     Indication: Monkeypox

REACTIONS (2)
  - Hypertransaminasaemia [Unknown]
  - Incorrect product administration duration [Unknown]
